FAERS Safety Report 19280173 (Version 2)
Quarter: 2022Q2

REPORT INFORMATION
  Report Type: Spontaneous
  Country: US (occurrence: US)
  Receive Date: 20210520
  Receipt Date: 20220502
  Transmission Date: 20220721
  Serious: No
  Sender: FDA-Public Use
  Company Number: US-PFIZER INC-2015313620

PATIENT
  Age: 63 Year
  Sex: Male
  Weight: 113 kg

DRUGS (8)
  1. LYRICA [Suspect]
     Active Substance: PREGABALIN
     Indication: Neuropathy peripheral
     Dosage: 50 MG, 2X/DAY
  2. LYRICA [Suspect]
     Active Substance: PREGABALIN
     Indication: Pain in extremity
     Dosage: 50 MG, 1X/DAY
  3. LYRICA [Suspect]
     Active Substance: PREGABALIN
     Indication: Diabetic mononeuropathy
     Dosage: 100 MG, 2X/DAY [ONE IN MORNING ONE AT NIGHT]
  4. LYRICA [Suspect]
     Active Substance: PREGABALIN
     Dosage: 100 MG, 2X/DAY (1 CAPSULE BY MOUTH 2 TIMES DAILY)
     Route: 048
     Dates: start: 20181217
  5. LYRICA [Suspect]
     Active Substance: PREGABALIN
     Dosage: 100 MG, 2X/DAY (1 CAPSULE BY MOUTH 2 TIMES DAILY)
     Route: 048
     Dates: start: 20210302
  6. METOLOL [Concomitant]
     Indication: Hypertension
     Dosage: 100 MG, 2X/DAY (ONE IN MORNING AND ONE AT NIGHT)
  7. LISINOPRIL [Concomitant]
     Active Substance: LISINOPRIL
     Indication: Hypertension
     Dosage: 40 MG, 1X/DAY (ONCE IN THE MORNING)
  8. FUROSEMIDE [Concomitant]
     Active Substance: FUROSEMIDE
     Indication: Blood pressure abnormal
     Dosage: 20 MG, 2X/DAY  (2 TABLETS, BOTH IN THE MORNING)

REACTIONS (3)
  - Intentional product misuse [Unknown]
  - Pain [Unknown]
  - Road traffic accident [Unknown]
